FAERS Safety Report 10678788 (Version 2)
Quarter: 2015Q1

REPORT INFORMATION
  Report Type: Report from Study
  Country: CA (occurrence: None)
  Receive Date: 20141223
  Receipt Date: 20150120
  Transmission Date: 20150720
  Serious: Yes (Other)
  Sender: FDA-Public Use
  Company Number: 2014FE03518

PATIENT
  Age: 80 Year
  Sex: Male

DRUGS (5)
  1. ASPIRIN /00002701/ (ACETYLSALICYLIC ACID) [Concomitant]
  2. CALCIUM (CALCIUM) [Concomitant]
     Active Substance: CALCIUM
  3. THYROID [Concomitant]
     Active Substance: LEVOTHYROXINE\LIOTHYRONINE
  4. FIRMAGON [Suspect]
     Active Substance: DEGARELIX ACETATE
     Indication: PROSTATE CANCER
     Dosage: 80 MG,MONTHLY, FORMULATION:INJECTION, SUBCUTANEOUS
     Route: 058
     Dates: start: 20140127
  5. BAYER CITRACAL VITAMIN D (COLECALCIFEROL) [Concomitant]

REACTIONS (3)
  - Asthenia [None]
  - Haemoglobin decreased [None]
  - Dysuria [None]

NARRATIVE: CASE EVENT DATE: 20141206
